FAERS Safety Report 23482586 (Version 1)
Quarter: 2024Q1

REPORT INFORMATION
  Report Type: Spontaneous
  Country: US (occurrence: US)
  Receive Date: 20240205
  Receipt Date: 20240205
  Transmission Date: 20240410
  Serious: Yes (Other)
  Sender: FDA-Public Use
  Company Number: US-MLMSERVICE-20240119-4786858-1

PATIENT

DRUGS (8)
  1. LACOSAMIDE [Suspect]
     Active Substance: LACOSAMIDE
     Indication: Epilepsy
     Dosage: UNK (HIGH-DOSE)
     Route: 065
     Dates: end: 2021
  2. ZONISAMIDE [Suspect]
     Active Substance: ZONISAMIDE
     Indication: Epilepsy
     Dosage: UNK (HIGH-DOSE)
     Route: 065
     Dates: end: 2021
  3. TOPIRAMATE [Suspect]
     Active Substance: TOPIRAMATE
     Indication: Epilepsy
     Dosage: UNK (HIGH-DOSE)
     Route: 065
  4. RUFINAMIDE [Suspect]
     Active Substance: RUFINAMIDE
     Indication: Epilepsy
     Dosage: UNK, (HIGH-DOSE)
     Route: 065
  5. FELBAMATE [Suspect]
     Active Substance: FELBAMATE
     Indication: Epilepsy
     Dosage: UNK (HIGH DOSE)
     Route: 065
  6. FELBAMATE [Suspect]
     Active Substance: FELBAMATE
     Dosage: 1500 MILLIGRAM, TID  (HIGH-DOSE (62?MG/KG/DAY)
     Route: 065
  7. FELBAMATE [Suspect]
     Active Substance: FELBAMATE
     Dosage: 300 MILLIGRAM, TID (10?MG/KG/DAY)
     Route: 065
  8. FELBAMATE [Suspect]
     Active Substance: FELBAMATE
     Dosage: 600 MILLIGRAM, BID (21?MG/KG/DAY)
     Route: 065

REACTIONS (1)
  - Nephrolithiasis [Unknown]
